FAERS Safety Report 7229087-8 (Version None)
Quarter: 2011Q1

REPORT INFORMATION
  Report Type: 
  Country: None (occurrence: None)
  Receive Date: 20110117
  Receipt Date: 20110110
  Transmission Date: 20110831
  Serious: Yes (Hospitalization)
  Sender: FDA-Public Use
  Company Number: IE-MEDIMMUNE-MEDI-0011996

PATIENT
  Sex: Female
  Weight: 3.39 kg

DRUGS (2)
  1. SYNAGIS [Suspect]
     Indication: PROPHYLAXIS
  2. SYNAGIS [Suspect]
     Indication: HEART DISEASE CONGENITAL
     Route: 030
     Dates: start: 20101012, end: 20101012

REACTIONS (2)
  - BRONCHIOLITIS [None]
  - GASTROENTERITIS ROTAVIRUS [None]
